FAERS Safety Report 6698284-2 (Version None)
Quarter: 2010Q2

REPORT INFORMATION
  Report Type: 
  Country: None (occurrence: None)
  Receive Date: 20100427
  Receipt Date: 20100415
  Transmission Date: 20101027
  Serious: Yes (Other)
  Sender: FDA-Public Use
  Company Number: IT-JNJFOC-20100206668

PATIENT
  Age: 45 Year
  Sex: Male

DRUGS (4)
  1. INFLIXIMAB [Suspect]
     Indication: PSORIATIC ARTHROPATHY
     Route: 042
     Dates: start: 20020101
  2. INFLIXIMAB [Suspect]
     Route: 042
     Dates: start: 20020101
  3. PREDNISOLONE [Concomitant]
  4. DICLOFENAC [Concomitant]

REACTIONS (1)
  - PULMONARY SARCOIDOSIS [None]
